FAERS Safety Report 25724280 (Version 1)
Quarter: 2025Q3

REPORT INFORMATION
  Report Type: Spontaneous
  Country: JP (occurrence: JP)
  Receive Date: 20250826
  Receipt Date: 20250826
  Transmission Date: 20251020
  Serious: Yes (Hospitalization, Other)
  Sender: ROCHE
  Company Number: JP-CHUGAI-2025026528

PATIENT
  Age: 76 Year
  Sex: Female
  Weight: 51 kg

DRUGS (14)
  1. ACTEMRA [Suspect]
     Active Substance: TOCILIZUMAB
     Indication: Rheumatoid arthritis
     Dosage: 162 MILLIGRAM, ONCE/4WEEKS
     Route: 058
     Dates: start: 20190117, end: 2024
  2. ACTEMRA [Suspect]
     Active Substance: TOCILIZUMAB
     Dosage: 162 MILLIGRAM, ONCE/4WEEKS
     Route: 058
     Dates: start: 20250105, end: 20250105
  3. LANSOPRAZOLE [Concomitant]
     Active Substance: LANSOPRAZOLE
     Dosage: 15 MILLIGRAM, QD
     Route: 048
  4. LOSARTAN POTASSIUM [Concomitant]
     Active Substance: LOSARTAN POTASSIUM
     Dosage: 12.5 MILLIGRAM, QD
     Route: 048
  5. PREDNISOLONE [Concomitant]
     Active Substance: PREDNISOLONE
     Dosage: 2 MILLIGRAM, QD
     Route: 048
  6. EZETIMIBE [Concomitant]
     Active Substance: EZETIMIBE
     Dosage: 10 MILLIGRAM, QD
     Route: 048
  7. PITAVASTATIN CALCIUM [Concomitant]
     Active Substance: PITAVASTATIN CALCIUM
     Dosage: 1 MILLIGRAM, QD
     Route: 048
  8. FEBUXOSTAT [Concomitant]
     Active Substance: FEBUXOSTAT
     Dosage: 10 MILLIGRAM, QD
     Route: 048
  9. ALFACALCIDOL [Concomitant]
     Active Substance: ALFACALCIDOL
     Dosage: 0.25 MICROGRAM, QD
     Route: 048
  10. BIO-THREE [Concomitant]
     Active Substance: HERBALS
     Dosage: 1 DOSAGE FORM, BID
     Route: 048
  11. LINZESS [Concomitant]
     Active Substance: LINACLOTIDE
     Dosage: 0.25 MILLIGRAM, QD
     Route: 048
  12. IRON SUCROSE [Concomitant]
     Active Substance: IRON SUCROSE
     Dosage: 80 MILLIGRAM, ONCE/6WEEKS
     Route: 042
  13. METHYLCOBALAMIN [Concomitant]
     Active Substance: METHYLCOBALAMIN
     Dosage: 500 MICROGRAM, EVERY SIX MONTHS
     Route: 065
  14. DENOSUMAB [Concomitant]
     Active Substance: DENOSUMAB
     Dosage: 60 MILLIGRAM, EVERY SIX MONTHS
     Route: 058

REACTIONS (5)
  - Syncope [Unknown]
  - Neutrophil count decreased [Recovering/Resolving]
  - White blood cell count decreased [Recovering/Resolving]
  - Platelet count decreased [Unknown]
  - Off label use [Unknown]

NARRATIVE: CASE EVENT DATE: 20190117
